FAERS Safety Report 5299959-2 (Version None)
Quarter: 2007Q2

REPORT INFORMATION
  Report Type: 
  Country: None (occurrence: None)
  Receive Date: 20070410
  Receipt Date: 20070329
  Transmission Date: 20071010
  Serious: Yes (Other)
  Sender: FDA-Public Use
  Company Number: B0465075A

PATIENT
  Sex: Female

DRUGS (2)
  1. ZOVIRAX [Suspect]
     Indication: PHARYNGOLARYNGEAL PAIN
     Dosage: 200 MG / UNKNOWN / ORAL
     Route: 048
     Dates: start: 20070210, end: 20070213
  2. AMYLASE [Concomitant]

REACTIONS (4)
  - HEPATITIS [None]
  - MUSCLE SPASMS [None]
  - NAUSEA [None]
  - PYREXIA [None]
